FAERS Safety Report 14971905 (Version 2)
Quarter: 2018Q2

REPORT INFORMATION
  Report Type: Report from Study
  Country: FR (occurrence: FR)
  Receive Date: 20180605
  Receipt Date: 20180615
  Transmission Date: 20180711
  Serious: Yes (Other)
  Sender: FDA-Public Use
  Company Number: FR-ROCHE-2131575

PATIENT
  Age: 60 Year
  Sex: Female

DRUGS (5)
  1. PEGYLATED LIPOSOMAL DOXORUBICIN [Suspect]
     Active Substance: DOXORUBICIN
     Indication: OVARIAN CANCER
     Dosage: ON 19/APR/2018, SHE RECEIVED MOST RECENT DOSE OF PEGYLATED LIPOSOMAL DOXORUBICIN BEFORE THE EVENT ON
     Route: 042
     Dates: start: 20180125, end: 20180516
  2. BEVACIZUMAB. [Suspect]
     Active Substance: BEVACIZUMAB
     Route: 042
     Dates: start: 20180601
  3. BLINDED ATEZOLIZUMAB [Suspect]
     Active Substance: ATEZOLIZUMAB
     Indication: OVARIAN CANCER
     Dosage: ON 19/APR/2018, SHE RECEIVED MOST RECENT DOSE OF ATEZOLIZUMAB BEFORE THE EVENT ONSET
     Route: 042
     Dates: start: 20180125
  4. CARBOPLATIN. [Suspect]
     Active Substance: CARBOPLATIN
     Indication: OVARIAN CANCER
     Dosage: ON 19/APR/2018, SHE RECEIVED MOST RECENT DOSE OF CARBOPLATIN PRIOR TO EVENT ONSET
     Route: 042
     Dates: start: 20180125
  5. BEVACIZUMAB. [Suspect]
     Active Substance: BEVACIZUMAB
     Indication: OVARIAN CANCER
     Dosage: ON 03/MAY/2018, SHE RECEIVED MOST RECENT DOSE OF BEVACIZUMAB BEFORE THE EVENT ONSET
     Route: 042
     Dates: start: 20180125, end: 20180516

REACTIONS (3)
  - Palmar-plantar erythrodysaesthesia syndrome [Recovered/Resolved]
  - Toxic skin eruption [Recovered/Resolved]
  - Mucosal inflammation [Recovered/Resolved]

NARRATIVE: CASE EVENT DATE: 20180507
